FAERS Safety Report 15403056 (Version 1)
Quarter: 2018Q3

REPORT INFORMATION
  Report Type: Spontaneous
  Country: TR (occurrence: TR)
  Receive Date: 20180919
  Receipt Date: 20180919
  Transmission Date: 20181010
  Serious: Yes (Life-Threatening)
  Sender: FDA-Public Use
  Company Number: TR-PFIZER INC-2018378030

PATIENT
  Age: 52 Year
  Sex: Female
  Weight: 58 kg

DRUGS (3)
  1. LYRICA [Suspect]
     Active Substance: PREGABALIN
     Indication: SUPPLEMENTATION THERAPY
     Dosage: 125 MG, 2X/DAY
     Route: 048
  2. LYRICA [Suspect]
     Active Substance: PREGABALIN
     Dosage: 150 MG, 2X/DAY
     Route: 048
  3. LYRICA [Suspect]
     Active Substance: PREGABALIN
     Dosage: 300 MG, 2X/DAY
     Route: 048

REACTIONS (6)
  - Balance disorder [Unknown]
  - Dizziness [Not Recovered/Not Resolved]
  - Memory impairment [Unknown]
  - Gait disturbance [Unknown]
  - Fall [Unknown]
  - Visual impairment [Unknown]

NARRATIVE: CASE EVENT DATE: 20130416
